FAERS Safety Report 5119606-X (Version None)
Quarter: 2006Q4

REPORT INFORMATION
  Report Type: 
  Country: None (occurrence: None)
  Receive Date: 20061003
  Receipt Date: 20060928
  Transmission Date: 20070319
  Serious: Yes (Other)
  Sender: FDA-Public Use
  Company Number: CA-GLAXOSMITHKLINE-A0622007A

PATIENT
  Sex: Male

DRUGS (1)
  1. IMITREX [Suspect]
     Indication: MIGRAINE
     Dosage: 100MG TWICE PER DAY
     Route: 048

REACTIONS (2)
  - CYANOSIS [None]
  - SULPHAEMOGLOBIN INCREASED [None]
